FAERS Safety Report 25541971 (Version 1)
Quarter: 2025Q3

REPORT INFORMATION
  Report Type: Spontaneous
  Country: MY (occurrence: MY)
  Receive Date: 20250711
  Receipt Date: 20250711
  Transmission Date: 20251020
  Serious: Yes (Other)
  Sender: ROCHE
  Company Number: MY-ROCHE-10000326759

PATIENT

DRUGS (2)
  1. ALECTINIB [Suspect]
     Active Substance: ALECTINIB
     Indication: Product used for unknown indication
     Route: 065
     Dates: start: 202108, end: 202211
  2. LORLATINIB [Suspect]
     Active Substance: LORLATINIB
     Indication: Product used for unknown indication
     Route: 048
     Dates: start: 202211

REACTIONS (7)
  - Oedema peripheral [Unknown]
  - Rash [Unknown]
  - Fatigue [Unknown]
  - Hypercholesterolaemia [Unknown]
  - Tinnitus [Unknown]
  - Weight increased [Unknown]
  - Malignant neoplasm progression [Unknown]
